FAERS Safety Report 8102256-0 (Version None)
Quarter: 2012Q1

REPORT INFORMATION
  Report Type: 
  Country: None (occurrence: None)
  Receive Date: 20120131
  Receipt Date: 20120131
  Transmission Date: 20120608
  Serious: Yes (Other)
  Sender: FDA-Public Use
  Company Number: None

PATIENT
  Age: 57 Year
  Sex: Male

DRUGS (2)
  1. LACTOPEROXIDASE + LYSOZYME (FORMULATION UNKNOWN) (LACTOPEROXIDASE + LY [Suspect]
     Dosage: UNK/SINGLE DOSE/UNKNOWN
  2. GLUCOSE OXIDASE + LACTOPEROXIDASE (FORMULATION UNKNOWN) (GLUCOSE OXIDA [Suspect]

REACTIONS (4)
  - REACTION TO DRUG EXCIPIENTS [None]
  - PULMONARY CONGESTION [None]
  - PULMONARY OEDEMA [None]
  - SPUTUM INCREASED [None]
